FAERS Safety Report 19179113 (Version 3)
Quarter: 2021Q2

REPORT INFORMATION
  Report Type: Report from Study
  Country: US (occurrence: US)
  Receive Date: 20210426
  Receipt Date: 20210504
  Transmission Date: 20210717
  Serious: Yes (Hospitalization)
  Sender: FDA-Public Use
  Company Number: US-BIOGEN-2021BI01003604

PATIENT
  Age: 33 Year
  Sex: Female

DRUGS (2)
  1. SPINRAZA [Suspect]
     Active Substance: NUSINERSEN
     Dosage: 1ST LOADING DOSE
     Route: 065
     Dates: start: 20210416
  2. SPINRAZA [Suspect]
     Active Substance: NUSINERSEN
     Indication: SPINAL MUSCULAR ATROPHY
     Route: 065
     Dates: end: 20200303

REACTIONS (5)
  - Pain in extremity [Not Recovered/Not Resolved]
  - Sciatica [Unknown]
  - Nerve compression [Not Recovered/Not Resolved]
  - Meningococcal bacteraemia [Not Recovered/Not Resolved]
  - Back pain [Recovered/Resolved]

NARRATIVE: CASE EVENT DATE: 202104
